APPROVED DRUG PRODUCT: SODIUM ACETATE
Active Ingredient: SODIUM ACETATE
Strength: 200MEQ/100ML (2MEQ/ML)
Dosage Form/Route: SOLUTION;INTRAVENOUS
Application: N018893 | Product #003 | TE Code: AP
Applicant: HOSPIRA INC
Approved: Sep 2, 2014 | RLD: Yes | RS: Yes | Type: RX